FAERS Safety Report 7978060-0 (Version None)
Quarter: 2011Q4

REPORT INFORMATION
  Report Type: 
  Country: None (occurrence: None)
  Receive Date: 20111214
  Receipt Date: 20111209
  Transmission Date: 20120403
  Serious: No
  Sender: FDA-Public Use
  Company Number: US-BIOGENIDEC-2011BI046684

PATIENT
  Age: 14 Year
  Sex: Female

DRUGS (3)
  1. BENADRYL [Concomitant]
     Indication: PREMEDICATION
     Route: 048
  2. MOTRIN [Concomitant]
     Indication: PREMEDICATION
  3. AVONEX [Suspect]
     Indication: MULTIPLE SCLEROSIS
     Route: 030
     Dates: start: 20110523

REACTIONS (5)
  - RASH PRURITIC [None]
  - INFLUENZA LIKE ILLNESS [None]
  - INJECTION SITE RASH [None]
  - IRRITABILITY [None]
  - MOOD SWINGS [None]
